FAERS Safety Report 18305520 (Version 3)
Quarter: 2020Q4

REPORT INFORMATION
  Report Type: Spontaneous
  Country: US (occurrence: US)
  Receive Date: 20200923
  Receipt Date: 20201207
  Transmission Date: 20210113
  Serious: No
  Sender: FDA-Public Use
  Company Number: US-PFIZER INC-2020366864

PATIENT
  Age: 64 Year
  Sex: Female

DRUGS (3)
  1. XELJANZ XR [Suspect]
     Active Substance: TOFACITINIB CITRATE
     Dosage: 11 MG, 1X/DAY
     Route: 048
     Dates: start: 202009, end: 2020
  2. CYMBALTA [Concomitant]
     Active Substance: DULOXETINE HYDROCHLORIDE
     Dosage: UNK
  3. XELJANZ XR [Suspect]
     Active Substance: TOFACITINIB CITRATE
     Indication: RHEUMATOID ARTHRITIS
     Dosage: 11 MG, 1X/DAY
     Route: 048
     Dates: start: 202007, end: 202009

REACTIONS (15)
  - Therapeutic product effect incomplete [Unknown]
  - Musculoskeletal chest pain [Unknown]
  - Pain in extremity [Unknown]
  - Paraesthesia [Unknown]
  - Asthma [Unknown]
  - Diarrhoea [Not Recovered/Not Resolved]
  - Epigastric discomfort [Recovering/Resolving]
  - Back pain [Unknown]
  - Defaecation urgency [Unknown]
  - Abdominal discomfort [Recovering/Resolving]
  - Malaise [Unknown]
  - Hypoaesthesia [Unknown]
  - Dyspnoea [Unknown]
  - Abdominal pain upper [Unknown]
  - Flank pain [Unknown]

NARRATIVE: CASE EVENT DATE: 2020
